FAERS Safety Report 6460931 (Version 3)
Quarter: 2013Q1

REPORT INFORMATION
  Report Type: Spontaneous
  Country: US (occurrence: US)
  Receive Date: 20071101
  Receipt Date: 20130218
  Transmission Date: 20140127
  Serious: Yes (Other)
  Sender: FDA-Public Use
  Company Number: US-RB-008152-07

PATIENT
  Age: 27 None
  Sex: Female
  Weight: 86.8 kg

DRUGS (3)
  1. SUBOXONE [Suspect]
     Indication: DRUG DEPENDENCE
     Route: 060
     Dates: start: 200706, end: 20070925
  2. SUBUTEX [Suspect]
     Indication: DRUG DEPENDENCE
     Route: 060
     Dates: start: 20070926
  3. CELEXA [Suspect]
     Indication: DEPRESSION
     Route: 048

REACTIONS (4)
  - Exposure during pregnancy [Recovered/Resolved]
  - Vaginal haemorrhage [Unknown]
  - Abortion spontaneous [Recovered/Resolved]
  - Foetal heart rate abnormal [Recovered/Resolved]
